FAERS Safety Report 5500657-8 (Version None)
Quarter: 2007Q4

REPORT INFORMATION
  Report Type: 
  Country: None (occurrence: None)
  Receive Date: 20071029
  Receipt Date: 20071025
  Transmission Date: 20080405
  Serious: Yes (Other)
  Sender: FDA-Public Use
  Company Number: A0689865A

PATIENT
  Age: 20 Year
  Sex: Female

DRUGS (1)
  1. ALLI [Suspect]
     Route: 065
     Dates: start: 20070717

REACTIONS (6)
  - ABDOMINAL DISCOMFORT [None]
  - ABDOMINAL PAIN [None]
  - COLITIS [None]
  - DIARRHOEA HAEMORRHAGIC [None]
  - HAEMATEMESIS [None]
  - NAUSEA [None]
